FAERS Safety Report 25150323 (Version 1)
Quarter: 2025Q2

REPORT INFORMATION
  Report Type: Spontaneous
  Country: US (occurrence: US)
  Receive Date: 20250402
  Receipt Date: 20250402
  Transmission Date: 20250716
  Serious: Yes (Other)
  Sender: BRACCO
  Company Number: US-BRACCO-2025US01842

PATIENT

DRUGS (2)
  1. ONIVYDE [Suspect]
     Active Substance: IRINOTECAN HYDROCHLORIDE
     Indication: Glioma
     Route: 018
  2. PROHANCE [Suspect]
     Active Substance: GADOTERIDOL
     Indication: Magnetic resonance imaging head
     Route: 018

REACTIONS (2)
  - Off label use [Unknown]
  - Encephalopathy [Unknown]
